FAERS Safety Report 10371715 (Version 1)
Quarter: 2014Q3

REPORT INFORMATION
  Report Type: Spontaneous
  Country: US (occurrence: US)
  Receive Date: 20140808
  Receipt Date: 20140808
  Transmission Date: 20150326
  Serious: No
  Sender: FDA-Public Use
  Company Number: US-009507513-1408USA004856

PATIENT
  Age: 19 Year
  Sex: Female
  Weight: 53.61 kg

DRUGS (1)
  1. NEXPLANON [Suspect]
     Active Substance: ETONOGESTREL
     Indication: CONTRACEPTION
     Dosage: 1 ROD
     Route: 059
     Dates: start: 20140723, end: 20140731

REACTIONS (2)
  - Implant site swelling [Recovering/Resolving]
  - Implant site infection [Recovering/Resolving]

NARRATIVE: CASE EVENT DATE: 20140728
